FAERS Safety Report 8090191-6 (Version None)
Quarter: 2012Q1

REPORT INFORMATION
  Report Type: 
  Country: None (occurrence: None)
  Receive Date: 20120129
  Receipt Date: 20111024
  Transmission Date: 20120608
  Serious: No
  Sender: FDA-Public Use
  Company Number: US-ABBOTT-11P-163-0867458-00

PATIENT
  Age: 60 Year
  Sex: Female

DRUGS (8)
  1. LIPITOR [Concomitant]
     Indication: PRODUCT USED FOR UNKNOWN INDICATION
  2. ZOLOFT [Concomitant]
     Indication: DEPRESSION
     Dates: start: 20110201
  3. PREDNISONE TAB [Concomitant]
     Indication: RHEUMATOID ARTHRITIS
     Dates: start: 20110601
  4. SYNTHROID [Concomitant]
     Indication: HYPOTHYROIDISM
     Dates: start: 19910101
  5. TOPROL-XL [Concomitant]
     Indication: BLOOD PRESSURE INCREASED
     Dates: start: 20060101
  6. PLAQUENIL [Concomitant]
     Indication: OSTEOPOROSIS
  7. ZOLOFT [Concomitant]
     Indication: ANXIETY
  8. HUMIRA [Suspect]
     Indication: RHEUMATOID ARTHRITIS
     Dates: start: 20110601

REACTIONS (6)
  - FATIGUE [None]
  - FEELING ABNORMAL [None]
  - DIARRHOEA [None]
  - PYREXIA [None]
  - VOMITING [None]
  - INFLUENZA [None]
